FAERS Safety Report 15310739 (Version 1)
Quarter: 2018Q3

REPORT INFORMATION
  Report Type: Spontaneous
  Country: US (occurrence: US)
  Receive Date: 20180813
  Receipt Date: 20180813
  Transmission Date: 20181010
  Serious: Yes (Other)
  Sender: FDA-Public Use
  Company Number: None

PATIENT
  Age: 38 Year
  Sex: Female

DRUGS (1)
  1. TIGER BALM ULTRA STRENGTH [Suspect]
     Active Substance: CAMPHOR (SYNTHETIC)\MENTHOL
     Indication: MYALGIA
     Dates: start: 20180809, end: 20180812

REACTIONS (4)
  - Application site burn [None]
  - Application site erythema [None]
  - Hypersensitivity [None]
  - Application site pruritus [None]

NARRATIVE: CASE EVENT DATE: 20180811
